FAERS Safety Report 5104980-0 (Version None)
Quarter: 2006Q3

REPORT INFORMATION
  Report Type: 
  Country: None (occurrence: None)
  Receive Date: 20060911
  Receipt Date: 20060823
  Transmission Date: 20061208
  Serious: Yes (Other)
  Sender: FDA-Public Use
  Company Number: US200608005243

PATIENT
  Age: 59 Year
  Sex: Female

DRUGS (1)
  1. ZYPREXA [Suspect]

REACTIONS (1)
  - HEPATITIS C [None]
